FAERS Safety Report 7805202-X (Version None)
Quarter: 2011Q4

REPORT INFORMATION
  Report Type: 
  Country: None (occurrence: None)
  Receive Date: 20111010
  Receipt Date: 20110927
  Transmission Date: 20120403
  Serious: Yes (Hospitalization)
  Sender: FDA-Public Use
  Company Number: GB-CELGENEUS-167-CCAZA-11091445

PATIENT
  Sex: Female
  Weight: 69.3 kg

DRUGS (19)
  1. FYBROGEL [Concomitant]
     Indication: CONSTIPATION
     Route: 065
     Dates: start: 20110330, end: 20110912
  2. CIPROFLOXACIN [Concomitant]
     Indication: ANTIBIOTIC PROPHYLAXIS
     Dosage: 500 MILLIGRAM
     Route: 065
     Dates: start: 20110718
  3. FLUCONAZOLE [Concomitant]
     Indication: ANTIFUNGAL PROPHYLAXIS
     Dosage: 400 MILLIGRAM
     Route: 065
     Dates: start: 20110718
  4. FLUTICASONE PROPIONATE [Concomitant]
     Dosage: 2 DOSAGE FORMS
     Route: 055
     Dates: start: 20080815
  5. AZACITIDINE [Suspect]
     Dosage: 75 MILLIGRAM/SQ. METER
     Route: 058
     Dates: start: 20110908, end: 20110914
  6. SALMETEROL XINAFOATE [Concomitant]
     Dosage: 2 DOSAGE FORMS
     Route: 055
     Dates: start: 20110127
  7. ADCAL D3 [Concomitant]
     Indication: HYPERCALCAEMIA
     Dosage: 2 MILLIGRAM
     Route: 065
     Dates: start: 20060607
  8. ASPIRIN [Concomitant]
     Indication: ANTIPLATELET THERAPY
     Dosage: 75 MILLIGRAM
     Route: 065
     Dates: start: 20110721
  9. LACTULOSE [Concomitant]
     Indication: CONSTIPATION
     Dosage: 5-10ML AS NEEDED
     Route: 065
     Dates: start: 20060815, end: 20110912
  10. RAMIPRIL [Concomitant]
     Indication: HYPERTENSION
     Dosage: 1.25 MILLIGRAM
     Route: 065
     Dates: start: 20091130
  11. ACETAMINOPHEN AND CODEINE PHOSPHATE [Concomitant]
     Dosage: 1 (15/500MG) TO 2 (30/1000MG) AS NEEDED
     Route: 065
     Dates: start: 20090513, end: 20110912
  12. SODIUM PICOSULFATE [Concomitant]
     Indication: CONSTIPATION
     Dosage: 4 GRAM
     Route: 065
     Dates: start: 20110202
  13. ACYCLOVIR [Concomitant]
     Indication: ANTIVIRAL PROPHYLAXIS
     Dosage: 800 MILLIGRAM
     Route: 065
     Dates: start: 20110718
  14. AMITRIPTYLINE HCL [Concomitant]
     Indication: DEPRESSION
     Dosage: 75 MILLIGRAM
     Route: 065
     Dates: start: 20060830
  15. OMEPRAZOLE [Concomitant]
     Dosage: 20 MILLIGRAM
     Route: 065
     Dates: start: 20100824, end: 20110912
  16. SIMVASTATIN [Concomitant]
     Route: 065
     Dates: start: 20110814
  17. SODIUM ALGINATE [Concomitant]
     Indication: ANTACID THERAPY
     Dosage: 10-20ML 4 TIMES DAILY
     Route: 065
     Dates: start: 20071118
  18. QVAR 40 [Concomitant]
     Dosage: 400 MICROGRAM
     Route: 065
     Dates: start: 20110114
  19. ALBUTEROL [Concomitant]
     Dosage: 400 MICROGRAM
     Route: 055
     Dates: start: 20101116

REACTIONS (2)
  - CELLULITIS [None]
  - DEEP VEIN THROMBOSIS [None]
